FAERS Safety Report 12241372 (Version 1)
Quarter: 2016Q2

REPORT INFORMATION
  Report Type: Spontaneous
  Country: US (occurrence: US)
  Receive Date: 20160406
  Receipt Date: 20160406
  Transmission Date: 20160815
  Serious: No
  Sender: FDA-Public Use
  Company Number: US-PFIZER INC-2016151177

PATIENT
  Sex: Female

DRUGS (1)
  1. XELJANZ [Suspect]
     Active Substance: TOFACITINIB CITRATE
     Dosage: UNK

REACTIONS (5)
  - Dyspnoea [Unknown]
  - Fatigue [Recovering/Resolving]
  - Musculoskeletal pain [Unknown]
  - Arthralgia [Recovering/Resolving]
  - Neck pain [Unknown]
